FAERS Safety Report 10076554 (Version 3)
Quarter: 2014Q4

REPORT INFORMATION
  Report Type: Spontaneous
  Country: US (occurrence: US)
  Receive Date: 20140414
  Receipt Date: 20141030
  Transmission Date: 20150528
  Serious: No
  Sender: FDA-Public Use
  Company Number: US-009507513-1404USA006905

PATIENT
  Sex: Male

DRUGS (2)
  1. PROPECIA [Suspect]
     Active Substance: FINASTERIDE
     Indication: ALOPECIA
     Dosage: 1 MG, UNK
     Route: 048
     Dates: start: 200604, end: 200606
  2. PROPECIA [Suspect]
     Active Substance: FINASTERIDE
     Indication: TRANSPLANT

REACTIONS (10)
  - Sexual dysfunction [Not Recovered/Not Resolved]
  - Oligospermia [Unknown]
  - Erectile dysfunction [Unknown]
  - Depression [Not Recovered/Not Resolved]
  - Testicular failure [Unknown]
  - Loss of libido [Unknown]
  - Cognitive disorder [Not Recovered/Not Resolved]
  - Semen volume decreased [Unknown]
  - Infertility male [Unknown]
  - Azoospermia [Unknown]

NARRATIVE: CASE EVENT DATE: 200604
